FAERS Safety Report 11009130 (Version 1)
Quarter: 2015Q2

REPORT INFORMATION
  Report Type: Spontaneous
  Country: US (occurrence: None)
  Receive Date: 20150409
  Receipt Date: 20150409
  Transmission Date: 20150821
  Serious: No
  Sender: FDA-Public Use
  Company Number: None

PATIENT
  Age: 57 Year
  Sex: Male
  Weight: 90.2 kg

DRUGS (1)
  1. DESFLURANE. [Suspect]
     Active Substance: DESFLURANE
     Indication: SURGERY
     Dosage: INHALE, OTHER
     Route: 055
     Dates: start: 20150304, end: 20150304

REACTIONS (2)
  - Blood pressure systolic decreased [None]
  - Hyperthermia malignant [None]

NARRATIVE: CASE EVENT DATE: 20150305
